FAERS Safety Report 4611025-5 (Version None)
Quarter: 2005Q1

REPORT INFORMATION
  Report Type: 
  Country: None (occurrence: None)
  Receive Date: 20050317
  Receipt Date: 20050308
  Transmission Date: 20050727
  Serious: Yes (Hospitalization)
  Sender: FDA-Public Use
  Company Number: 200510857FR

PATIENT
  Age: 56 Year
  Sex: Male

DRUGS (4)
  1. KETEK [Suspect]
     Indication: BRONCHITIS
     Route: 048
     Dates: start: 20050201
  2. BECONASE [Suspect]
     Indication: BRONCHITIS
  3. RHINADVIL [Concomitant]
     Indication: BRONCHITIS
  4. PARACETAMOL [Concomitant]
     Indication: BRONCHITIS

REACTIONS (5)
  - ALBUMIN URINE [None]
  - ATRIAL FIBRILLATION [None]
  - FATIGUE [None]
  - SELF-MEDICATION [None]
  - VENTRICULAR FIBRILLATION [None]
